FAERS Safety Report 13133170 (Version 16)
Quarter: 2019Q4

REPORT INFORMATION
  Report Type: Report from Study
  Country: CN (occurrence: CN)
  Receive Date: 20170120
  Receipt Date: 20191217
  Transmission Date: 20200122
  Serious: Yes (Hospitalization, Other)
  Sender: FDA-Public Use
  Company Number: PHHY2016CN178065

PATIENT
  Age: 34 Year
  Sex: Male
  Weight: 54 kg

DRUGS (64)
  1. METHYLPREDNISOLONE. [Suspect]
     Active Substance: METHYLPREDNISOLONE
     Dosage: 580 MG, QD
     Route: 065
     Dates: start: 20161207, end: 20161208
  2. METHYLPREDNISOLONE. [Suspect]
     Active Substance: METHYLPREDNISOLONE
     Dosage: 20 MG, QD
     Route: 065
     Dates: start: 20161214, end: 20161229
  3. AMLODIPINE [Concomitant]
     Active Substance: AMLODIPINE BESYLATE
     Indication: RENAL HYPERTENSION
     Dosage: 5 MG, QD
     Route: 048
     Dates: start: 20161207, end: 20161218
  4. CEFOPERAZONE SODIUM AND SULBACTAM SODIUM [Concomitant]
     Active Substance: CEFOPERAZONE SODIUM\SULBACTAM SODIUM
     Indication: INFECTION
     Dosage: 2000 MG, QD
     Route: 042
     Dates: start: 20161206, end: 20161212
  5. MANNITOL. [Concomitant]
     Active Substance: MANNITOL
     Indication: PRODUCT USED FOR UNKNOWN INDICATION
     Dosage: 125 ML, PRN
     Route: 042
     Dates: start: 20161206, end: 20161206
  6. TAMSULOSIN [Concomitant]
     Active Substance: TAMSULOSIN
     Indication: POLYURIA
     Dosage: 0.2 MG, QD
     Route: 048
     Dates: start: 20161220, end: 20170106
  7. VITAMIN B4 [Concomitant]
     Indication: WHITE BLOOD CELL COUNT DECREASED
     Dosage: 20 MG, TID
     Route: 048
     Dates: start: 20170103
  8. MYFORTIC [Suspect]
     Active Substance: MYCOPHENOLATE SODIUM
     Indication: PROPHYLAXIS AGAINST TRANSPLANT REJECTION
     Dosage: 720 MG, QD
     Route: 048
     Dates: start: 20161212, end: 20170104
  9. CICLOSPORIN [Suspect]
     Active Substance: CYCLOSPORINE
     Dosage: 250 MG, QD
     Route: 065
     Dates: start: 20170303
  10. AMIKACIN. [Concomitant]
     Active Substance: AMIKACIN
     Indication: PROPHYLAXIS
     Dosage: 400 MG, PRN
     Route: 042
     Dates: start: 20161206, end: 20161206
  11. HEPATITIS B IMMUNE GLOBULIN [Concomitant]
     Active Substance: HUMAN HEPATITIS B VIRUS IMMUNE GLOBULIN
     Indication: HEPATITIS B VIRUS TEST POSITIVE
     Dosage: 400 IU, PRN
     Route: 030
     Dates: start: 20161207, end: 20161207
  12. CICLOSPORIN [Suspect]
     Active Substance: CYCLOSPORINE
     Indication: RENAL TRANSPLANT
     Dosage: 200 MG, QD
     Route: 065
     Dates: start: 20161226, end: 20161228
  13. CICLOSPORIN [Suspect]
     Active Substance: CYCLOSPORINE
     Indication: APLASTIC ANAEMIA
     Dosage: 200 MG, QD
     Route: 065
     Dates: start: 20161226, end: 20161228
  14. CICLOSPORIN [Suspect]
     Active Substance: CYCLOSPORINE
     Indication: IMMUNOSUPPRESSION
     Dosage: 300 MG, QD
     Route: 065
     Dates: start: 20161229, end: 20161229
  15. PREDNISONE. [Suspect]
     Active Substance: PREDNISONE
     Dosage: 10 MG, QD
     Route: 065
     Dates: start: 20170303
  16. DEXAMETHASONE. [Concomitant]
     Active Substance: DEXAMETHASONE
     Dosage: 3 MG, PRN
     Route: 042
     Dates: start: 20170104, end: 20170104
  17. NIFEDIPINE. [Concomitant]
     Active Substance: NIFEDIPINE
     Dosage: 10 MG, PRN
     Route: 048
     Dates: start: 20161213, end: 20161213
  18. INSULIN [Concomitant]
     Active Substance: INSULIN NOS
     Indication: BLOOD GLUCOSE ABNORMAL
     Dosage: 6 IU, BID
     Route: 042
     Dates: start: 20161215, end: 20161215
  19. SODIUM BICARBONATE. [Concomitant]
     Active Substance: SODIUM BICARBONATE
     Indication: PRODUCT USED FOR UNKNOWN INDICATION
     Dosage: 1000 MG, BID
     Route: 048
     Dates: start: 20161214, end: 20170302
  20. HYDROTALCITE [Concomitant]
     Active Substance: HYDROTALCITE
     Indication: PROPHYLAXIS
     Dosage: 1000 MG, QD
     Route: 048
     Dates: start: 20161207
  21. CICLOSPORIN [Suspect]
     Active Substance: CYCLOSPORINE
     Dosage: 350 MG, QD
     Route: 065
     Dates: start: 20170104, end: 20170105
  22. TACROLIMUS. [Suspect]
     Active Substance: TACROLIMUS
     Indication: IMMUNOSUPPRESSANT DRUG THERAPY
     Dosage: 6 MG, QD
     Route: 065
     Dates: start: 20161207, end: 20161208
  23. METHYLPREDNISOLONE. [Suspect]
     Active Substance: METHYLPREDNISOLONE
     Indication: IMMUNOSUPPRESSION
     Dosage: 660 MG, QD
     Route: 065
     Dates: start: 20161206, end: 20161206
  24. BISOPROLOL FUMARATE. [Concomitant]
     Active Substance: BISOPROLOL FUMARATE
     Dosage: 5 MG, BID
     Route: 048
     Dates: start: 20170303
  25. ALPAZ [Concomitant]
     Active Substance: ALPRAZOLAM
     Indication: SEDATION
     Dosage: 0.4 MG, QD
     Route: 048
     Dates: start: 20161207, end: 20170109
  26. DEXAMETHASONE. [Concomitant]
     Active Substance: DEXAMETHASONE
     Indication: HYPERSENSITIVITY
     Dosage: 3 MG, PRN
     Route: 042
     Dates: start: 20161228, end: 20161228
  27. DIAZEPAM. [Concomitant]
     Active Substance: DIAZEPAM
     Indication: SEDATION
     Dosage: 5 MG, PRN
     Route: 048
     Dates: start: 20161206, end: 20161206
  28. FUROSEMIDE. [Concomitant]
     Active Substance: FUROSEMIDE
     Dosage: 20 MG, TID
     Route: 042
     Dates: start: 20161217, end: 20161217
  29. HEPARIN SODIUM. [Concomitant]
     Active Substance: HEPARIN SODIUM
     Indication: PROPHYLAXIS
     Dosage: 12500 IU, W2D4
     Route: 042
     Dates: start: 20161208, end: 20170105
  30. NIFEDIPINE. [Concomitant]
     Active Substance: NIFEDIPINE
     Dosage: 10 MG, QD
     Route: 048
     Dates: start: 20161209, end: 20161211
  31. SODIUM BICARBONATE. [Concomitant]
     Active Substance: SODIUM BICARBONATE
     Dosage: 500 MG, BID
     Route: 048
     Dates: start: 20170303
  32. SODIUM BICARBONATE. [Concomitant]
     Active Substance: SODIUM BICARBONATE
     Dosage: 125 ML, PRN
     Route: 042
     Dates: start: 20161217, end: 20161217
  33. CICLOSPORIN [Suspect]
     Active Substance: CYCLOSPORINE
     Dosage: 300 MG, QD
     Route: 065
     Dates: start: 20170106, end: 20170302
  34. SIMULECT [Suspect]
     Active Substance: BASILIXIMAB
     Indication: RENAL TRANSPLANT
     Dosage: 20 MG, QD
     Route: 042
     Dates: start: 20161206, end: 20161206
  35. PREDNISONE. [Suspect]
     Active Substance: PREDNISONE
     Indication: IMMUNOSUPPRESSANT DRUG THERAPY
     Dosage: 10 MG, QD
     Route: 065
     Dates: start: 20161229, end: 20170108
  36. BISOPROLOL FUMARATE. [Concomitant]
     Active Substance: BISOPROLOL FUMARATE
     Indication: HYPERTENSION
     Dosage: 5 MG, QD
     Route: 048
     Dates: start: 20161227, end: 20170302
  37. CLONIDINE. [Concomitant]
     Active Substance: CLONIDINE
     Dosage: 150 MCG/ML, TID
     Route: 048
     Dates: start: 20161211, end: 20161218
  38. NIFEDIPINE. [Concomitant]
     Active Substance: NIFEDIPINE
     Indication: HYPERTENSION
     Dosage: 10 MG, PRN
     Route: 048
     Dates: start: 20161207, end: 20161207
  39. INSULIN [Concomitant]
     Active Substance: INSULIN NOS
     Dosage: 6 IU, QD
     Route: 042
     Dates: start: 20161216, end: 20161218
  40. TERAZOSIN HYDROCHLORIDE. [Concomitant]
     Active Substance: TERAZOSIN HYDROCHLORIDE
     Indication: BLOOD PRESSURE INCREASED
     Dosage: 2 MG, QD
     Route: 048
     Dates: start: 20161213, end: 20161218
  41. CICLOSPORIN [Suspect]
     Active Substance: CYCLOSPORINE
     Dosage: 400 MG, QD
     Route: 065
     Dates: start: 20161230, end: 20170103
  42. SIMULECT [Suspect]
     Active Substance: BASILIXIMAB
     Indication: IMMUNOSUPPRESSANT DRUG THERAPY
  43. METHYLPREDNISOLONE. [Suspect]
     Active Substance: METHYLPREDNISOLONE
     Dosage: 40 MG, QD
     Route: 065
     Dates: start: 20161210, end: 20161213
  44. CEFOPERAZONE SODIUM AND SULBACTAM SODIUM [Concomitant]
     Active Substance: CEFOPERAZONE SODIUM\SULBACTAM SODIUM
     Dosage: 2000 MG, QD
     Route: 042
     Dates: start: 20161231, end: 20161231
  45. SMECTA [Concomitant]
     Active Substance: MONTMORILLONITE
     Indication: DIARRHOEA
     Dosage: 3000 MG, TID
     Route: 048
     Dates: start: 20161210, end: 20161214
  46. CONCOR [Concomitant]
     Active Substance: BISOPROLOL FUMARATE
     Indication: HYPERTENSION
     Dosage: 5 MG, QD
     Route: 048
     Dates: start: 20170602
  47. MYFORTIC [Suspect]
     Active Substance: MYCOPHENOLATE SODIUM
     Indication: IMMUNOSUPPRESSANT DRUG THERAPY
     Dosage: 1440 MG, QD
     Route: 048
     Dates: start: 20161207, end: 20161211
  48. MYFORTIC [Suspect]
     Active Substance: MYCOPHENOLATE SODIUM
     Dosage: 360 MG, QD
     Route: 048
     Dates: start: 20170105
  49. SIMULECT [Suspect]
     Active Substance: BASILIXIMAB
     Indication: PROPHYLAXIS AGAINST TRANSPLANT REJECTION
     Dosage: 20 MG, QD
     Route: 042
     Dates: start: 20161210, end: 20161210
  50. TACROLIMUS. [Suspect]
     Active Substance: TACROLIMUS
     Dosage: 4 MG, QD
     Route: 065
     Dates: start: 20161209, end: 20161226
  51. PREDNISONE. [Suspect]
     Active Substance: PREDNISONE
     Dosage: 15 MG, QD
     Route: 065
     Dates: start: 20170109, end: 20170302
  52. AMLODIPINE [Concomitant]
     Active Substance: AMLODIPINE BESYLATE
     Indication: HYPERTENSION
  53. DEXAMETHASONE. [Concomitant]
     Active Substance: DEXAMETHASONE
     Dosage: 3 MG, PRN
     Route: 042
     Dates: start: 20161231, end: 20161231
  54. DILTIAZEM HYDROCHLORIDE. [Concomitant]
     Active Substance: DILTIAZEM HYDROCHLORIDE
     Indication: CARDIOVASCULAR DISORDER
     Dosage: 30 MG, BID
     Route: 048
     Dates: start: 20161207
  55. TALCID [Concomitant]
     Active Substance: HYDROTALCITE
     Indication: GASTRITIS PROPHYLAXIS
     Dosage: 1000 MG, QD
     Route: 048
     Dates: start: 20161207
  56. SODIUM BICARBONATE. [Concomitant]
     Active Substance: SODIUM BICARBONATE
     Indication: ELECTROLYTE SUBSTITUTION THERAPY
     Dosage: 250 ML, QD
     Route: 042
     Dates: start: 20161206, end: 20161207
  57. MYFORTIC [Suspect]
     Active Substance: MYCOPHENOLATE SODIUM
     Indication: RENAL TRANSPLANT
     Dosage: 1440 MG, QD
     Route: 048
     Dates: start: 20161206, end: 20161206
  58. METHYLPREDNISOLONE. [Suspect]
     Active Substance: METHYLPREDNISOLONE
     Dosage: 280 MG, QD
     Route: 065
     Dates: start: 20161209, end: 20161209
  59. BISOPROLOL FUMARATE. [Concomitant]
     Active Substance: BISOPROLOL FUMARATE
     Indication: RENAL HYPERTENSION
     Dosage: 5 MG, BID
     Route: 048
     Dates: start: 20161207, end: 20161218
  60. CLONIDINE. [Concomitant]
     Active Substance: CLONIDINE
     Indication: HYPERTENSION
     Dosage: 75 MCG/ML, TID
     Route: 048
     Dates: start: 20161209, end: 20161210
  61. FUROSEMIDE. [Concomitant]
     Active Substance: FUROSEMIDE
     Indication: POLYURIA
     Dosage: 20 MG, BID
     Route: 042
     Dates: start: 20161215, end: 20161215
  62. ETAMSYLATE [Concomitant]
     Active Substance: ETHAMSYLATE
     Indication: HAEMOSTASIS
     Dosage: 1000 MG, PRN
     Route: 042
     Dates: start: 20161207, end: 20161207
  63. ESOMEPRAZOLE MAGNESIUM. [Concomitant]
     Active Substance: ESOMEPRAZOLE MAGNESIUM
     Indication: GASTRITIS PROPHYLAXIS
     Dosage: 40 MG, QD
     Route: 042
     Dates: start: 20161207, end: 20170104
  64. SODIUM BICARBONATE. [Concomitant]
     Active Substance: SODIUM BICARBONATE
     Indication: URINE ALKALINISATION THERAPY
     Dosage: 500 MG, BID
     Route: 048
     Dates: start: 20170303

REACTIONS (17)
  - Aplastic anaemia [Recovered/Resolved]
  - Blood urea increased [Unknown]
  - Blood bilirubin increased [Unknown]
  - C-reactive protein increased [Unknown]
  - Transplant rejection [Recovered/Resolved]
  - Dizziness [Recovered/Resolved]
  - Procedural pain [Recovering/Resolving]
  - Parvovirus infection [Recovered/Resolved]
  - Headache [Not Recovered/Not Resolved]
  - Anaemia [Recovered/Resolved]
  - Nasopharyngitis [Recovered/Resolved]
  - Pyrexia [Recovering/Resolving]
  - Parvovirus infection [Recovered/Resolved]
  - Leukopenia [Recovering/Resolving]
  - Hyperkalaemia [Recovering/Resolving]
  - Diarrhoea [Recovering/Resolving]
  - Fatigue [Recovering/Resolving]

NARRATIVE: CASE EVENT DATE: 20161207
